FAERS Safety Report 11111786 (Version 1)
Quarter: 2015Q2

REPORT INFORMATION
  Report Type: Spontaneous
  Country: US (occurrence: None)
  Receive Date: 20150512
  Receipt Date: 20150512
  Transmission Date: 20150821
  Serious: Yes (Life-Threatening, Disabling)
  Sender: FDA-Public Use
  Company Number: None

PATIENT
  Age: 35 Year
  Sex: Male
  Weight: 81.65 kg

DRUGS (2)
  1. PALMETTO HARMONY (CBD OIL) [Suspect]
     Active Substance: CANNABIS SATIVA SEED OIL
     Indication: BACK PAIN
     Dosage: 1ML, THREE TIMES DAILY, TAKEN BY MOUTH
     Route: 048
     Dates: start: 20150401, end: 20150429
  2. PALMETTO HARMONY (CBD OIL) [Suspect]
     Active Substance: CANNABIS SATIVA SEED OIL
     Indication: SLEEP DISORDER THERAPY
     Dosage: 1ML, THREE TIMES DAILY, TAKEN BY MOUTH
     Route: 048
     Dates: start: 20150401, end: 20150429

REACTIONS (2)
  - Lethargy [None]
  - Vomiting [None]

NARRATIVE: CASE EVENT DATE: 20150421
